FAERS Safety Report 7325229-4 (Version None)
Quarter: 2011Q1

REPORT INFORMATION
  Report Type: 
  Country: None (occurrence: None)
  Receive Date: 20110302
  Receipt Date: 20110224
  Transmission Date: 20110831
  Serious: No
  Sender: FDA-Public Use
  Company Number: US-PFIZER INC-2011041321

PATIENT
  Sex: Male

DRUGS (2)
  1. GEODON [Suspect]
     Dosage: 40 MG, 3X/DAY
     Route: 048
     Dates: start: 20100101
  2. GEODON [Suspect]
     Dosage: 40 MG, 2X/DAY
     Route: 048

REACTIONS (2)
  - ERECTILE DYSFUNCTION [None]
  - HEART RATE INCREASED [None]
